FAERS Safety Report 14066988 (Version 2)
Quarter: 2017Q4

REPORT INFORMATION
  Report Type: Report from Study
  Country: None (occurrence: CA)
  Receive Date: 20171010
  Receipt Date: 20171101
  Transmission Date: 20180321
  Serious: Yes (Hospitalization, Other)
  Sender: FDA-Public Use
  Company Number: CA-ABBVIE-17K-028-2117987-00

PATIENT
  Sex: Female
  Weight: 50.85 kg

DRUGS (2)
  1. HUMIRA [Suspect]
     Active Substance: ADALIMUMAB
     Indication: CROHN^S DISEASE
     Route: 058
     Dates: start: 20090601, end: 2012
  2. HUMIRA [Suspect]
     Active Substance: ADALIMUMAB
     Route: 058
     Dates: start: 2017

REACTIONS (8)
  - Intestinal dilatation [Unknown]
  - Small intestinal stenosis [Unknown]
  - Large intestinal obstruction [Unknown]
  - Postoperative adhesion [Unknown]
  - Large intestinal stenosis [Recovered/Resolved]
  - Abdominal wound dehiscence [Recovered/Resolved]
  - Crohn^s disease [Unknown]
  - Gastrointestinal wall thickening [Recovering/Resolving]

NARRATIVE: CASE EVENT DATE: 2012
